FAERS Safety Report 21658864 (Version 1)
Quarter: 2022Q4

REPORT INFORMATION
  Report Type: Spontaneous
  Country: DE (occurrence: DE)
  Receive Date: 20221129
  Receipt Date: 20221129
  Transmission Date: 20230113
  Serious: Yes (Hospitalization)
  Sender: FDA-Public Use
  Company Number: DE-ADRED-08087-01

PATIENT
  Age: 47 Year
  Sex: Male
  Weight: 113 kg

DRUGS (3)
  1. DICLOFENAC [Suspect]
     Active Substance: DICLOFENAC
     Indication: Product used for unknown indication
     Dosage: UNK
     Route: 048
  2. ALLOPURINOL [Suspect]
     Active Substance: ALLOPURINOL
     Indication: Product used for unknown indication
     Dosage: UNK
     Route: 048
  3. JANSSEN COVID-19 VACCINE [Suspect]
     Active Substance: AD26.COV2.S
     Indication: Product used for unknown indication
     Dosage: ACCORDING TO SCHEME
     Route: 065

REACTIONS (5)
  - Pain [Unknown]
  - Paraesthesia [Unknown]
  - Oedema peripheral [Unknown]
  - Pruritus [Unknown]
  - Gout [Unknown]

NARRATIVE: CASE EVENT DATE: 20210813
